FAERS Safety Report 7633961-8 (Version None)
Quarter: 2011Q3

REPORT INFORMATION
  Report Type: 
  Country: None (occurrence: None)
  Receive Date: 20110725
  Receipt Date: 20110714
  Transmission Date: 20111222
  Serious: Yes (Hospitalization)
  Sender: FDA-Public Use
  Company Number: PT-JNJFOC-20110402121

PATIENT
  Sex: Female

DRUGS (2)
  1. CONTRACEPTIVE [Concomitant]
     Indication: CONTRACEPTION
  2. STELARA [Suspect]
     Indication: PSORIASIS
     Route: 058
     Dates: start: 20100501

REACTIONS (1)
  - PULMONARY EMBOLISM [None]
